FAERS Safety Report 12687324 (Version 5)
Quarter: 2019Q1

REPORT INFORMATION
  Report Type: Spontaneous
  Country: FR (occurrence: FR)
  Receive Date: 20160825
  Receipt Date: 20190110
  Transmission Date: 20190417
  Serious: Yes (Life-Threatening, Hospitalization, Disabling, Other)
  Sender: FDA-Public Use
  Company Number: FR-MYLANLABS-2016M1035258

PATIENT
  Age: 19 Year
  Sex: Female
  Weight: 59.9 kg

DRUGS (4)
  1. OMEPRAZOLE. [Suspect]
     Active Substance: OMEPRAZOLE
     Indication: BACK PAIN
     Dosage: UNK
     Route: 048
     Dates: start: 20160701, end: 20160701
  2. KETOPROFEN. [Suspect]
     Active Substance: KETOPROFEN
     Indication: BACK PAIN
     Dosage: 1 DOSAGE FORM, EVENING
     Dates: start: 20160630
  3. KETOPROFEN. [Suspect]
     Active Substance: KETOPROFEN
     Dosage: 1 DF, ONCE
     Route: 048
     Dates: start: 20160701, end: 20160701
  4. PARACETAMOL [Suspect]
     Active Substance: ACETAMINOPHEN
     Indication: BACK PAIN
     Dosage: UNK
     Route: 048
     Dates: start: 20160630

REACTIONS (18)
  - Acute kidney injury [Recovered/Resolved]
  - Azotaemia [Recovered/Resolved with Sequelae]
  - Inflammation [Unknown]
  - Hepatitis cholestatic [Unknown]
  - Asthenia [Unknown]
  - Anuria [Not Recovered/Not Resolved]
  - Thrombocytopenia [Recovered/Resolved]
  - Thrombotic microangiopathy [Recovered/Resolved with Sequelae]
  - Vomiting [Unknown]
  - Stress cardiomyopathy [Recovered/Resolved]
  - Hepatitis acute [Recovered/Resolved]
  - Oliguria [Unknown]
  - Hepatocellular injury [Recovered/Resolved]
  - Diarrhoea [Unknown]
  - Renal tubular necrosis [Unknown]
  - Hyperaesthesia [Unknown]
  - Back pain [Unknown]
  - Renal cortical necrosis [Not Recovered/Not Resolved]

NARRATIVE: CASE EVENT DATE: 20160701
